FAERS Safety Report 4875771-0 (Version None)
Quarter: 2006Q1

REPORT INFORMATION
  Report Type: 
  Country: None (occurrence: None)
  Receive Date: 20060104
  Receipt Date: 20051220
  Transmission Date: 20060701
  Serious: Yes (Hospitalization)
  Sender: FDA-Public Use
  Company Number: GXKR2005NZ02147

PATIENT
  Age: 54 Year
  Sex: Male

DRUGS (3)
  1. RIFAMPICIN [Suspect]
     Indication: DISSEMINATED TUBERCULOSIS
     Dosage: 600 MG QD
  2. ISONIAZID [Concomitant]
  3. PREDNISONE [Concomitant]

REACTIONS (16)
  - ABNORMAL BEHAVIOUR [None]
  - ADRENOCORTICAL INSUFFICIENCY CHRONIC [None]
  - AREFLEXIA [None]
  - BLOOD PRESSURE DECREASED [None]
  - DELIRIUM [None]
  - DRUG ADMINISTRATION ERROR [None]
  - HALLUCINATION, VISUAL [None]
  - HEADACHE [None]
  - HYPERKALAEMIA [None]
  - HYPOGLYCAEMIA [None]
  - HYPONATRAEMIA [None]
  - HYPOREFLEXIA [None]
  - HYPOVOLAEMIA [None]
  - LETHARGY [None]
  - NAUSEA [None]
  - SKIN HYPERPIGMENTATION [None]
